FAERS Safety Report 25985490 (Version 1)
Quarter: 2025Q4

REPORT INFORMATION
  Report Type: Spontaneous
  Country: EU (occurrence: EU)
  Receive Date: 20251031
  Receipt Date: 20251031
  Transmission Date: 20260117
  Serious: Yes (Hospitalization, Other)
  Sender: BOEHRINGER INGELHEIM
  Company Number: None

PATIENT
  Age: 50 Year
  Sex: Male

DRUGS (8)
  1. JARDIANCE [Suspect]
     Active Substance: EMPAGLIFLOZIN
     Indication: Hyperglycaemia
     Route: 048
     Dates: start: 20250723
  2. OMEPRAZOL CINFAMED 20 mg CAPSULAS DURAS GASTRORESISTENTES EFG , 28 c?p [Concomitant]
     Indication: Product used for unknown indication
     Route: 048
     Dates: start: 20250723
  3. ADIRO 100 MG COMPRIMIDOS GASTRORRESISTENTES EFG, 30 comprimidos (PVC- [Concomitant]
     Indication: Product used for unknown indication
     Route: 048
     Dates: start: 20250723
  4. FUROSEMIDE [Concomitant]
     Active Substance: FUROSEMIDE
     Indication: Product used for unknown indication
     Dosage: HALF TABLET OF 40 MG
     Route: 048
     Dates: start: 20250804
  5. EMCONCOR COR 5 mg COMPRIMIDOS RECUBIERTOS CON PELICULA , 28 comprimido [Concomitant]
     Indication: Product used for unknown indication
     Route: 048
     Dates: start: 20250723
  6. LIPOCOMB 20 MG/10 MG CAPSULAS DURAS , 30 c?psulas [Concomitant]
     Indication: Product used for unknown indication
     Route: 048
     Dates: start: 20250723
  7. LORMETAZEPAM CINFA 2 mg COMPRIMIDOS EFG, 20 comprimidos [Concomitant]
     Indication: Product used for unknown indication
     Route: 048
     Dates: start: 20250924
  8. TRAZODONA CINFA 100 MG COMPRIMIDOS EFG, 60 comprimidos (Blister PVC/PV [Concomitant]
     Indication: Product used for unknown indication
     Route: 048
     Dates: start: 20250922

REACTIONS (1)
  - Metabolic acidosis [Recovered/Resolved]

NARRATIVE: CASE EVENT DATE: 20251011
